FAERS Safety Report 7785024-9 (Version None)
Quarter: 2011Q3

REPORT INFORMATION
  Report Type: 
  Country: None (occurrence: None)
  Receive Date: 20110929
  Receipt Date: 20110916
  Transmission Date: 20111222
  Serious: Yes (Hospitalization, Other)
  Sender: FDA-Public Use
  Company Number: US-RANBAXY-2011RR-48413

PATIENT
  Age: 67 Year
  Sex: Male

DRUGS (9)
  1. LEVAQUIN [Suspect]
     Dosage: 250 MG, QD
     Route: 048
     Dates: start: 20050211
  2. LEVAQUIN [Suspect]
     Indication: BACTERIAL INFECTION
     Dosage: 500 MG, UNK
     Route: 048
     Dates: start: 20030101
  3. TRIAMCINOLONE [Suspect]
     Indication: STEROID THERAPY
     Dosage: UNK
     Route: 065
     Dates: start: 20060901
  4. LEVAQUIN [Suspect]
     Indication: INFECTION
     Dosage: 500 MG, UNK
     Route: 048
     Dates: start: 20041207
  5. LEVAQUIN [Suspect]
     Dosage: 500 MG, UNK
     Route: 048
     Dates: start: 20051029
  6. LEVAQUIN [Suspect]
     Dosage: 500 MG, UNK
     Route: 048
     Dates: start: 20060513
  7. LEVAQUIN [Suspect]
     Dosage: 250 MG, UNK
     Route: 048
     Dates: start: 20070911
  8. LEVAQUIN [Suspect]
     Dosage: 500 MG, UNK
     Route: 048
     Dates: start: 20070911
  9. HYDROCORTISONE VALERATE [Suspect]
     Indication: STEROID THERAPY
     Dosage: UNK
     Route: 061
     Dates: start: 20070901

REACTIONS (1)
  - TENDON RUPTURE [None]
